FAERS Safety Report 7818608-X (Version None)
Quarter: 2011Q4

REPORT INFORMATION
  Report Type: 
  Country: None (occurrence: None)
  Receive Date: 20111017
  Receipt Date: 20111012
  Transmission Date: 20120403
  Serious: Yes (Other)
  Sender: FDA-Public Use
  Company Number: FI-AMGEN-FINSP2011052885

PATIENT
  Age: 18 Year
  Sex: Female

DRUGS (4)
  1. ARANESP [Suspect]
     Indication: HAEMODIALYSIS
     Dosage: 40 MUG, Q4WK
     Dates: start: 20100604
  2. ARANESP [Suspect]
  3. ARANESP [Suspect]
     Dosage: UNK
  4. ARANESP [Suspect]
     Dosage: UNK

REACTIONS (5)
  - FOLATE DEFICIENCY [None]
  - FULL BLOOD COUNT DECREASED [None]
  - RETICULOCYTOPENIA [None]
  - IRON DEFICIENCY [None]
  - ANAEMIA [None]
